FAERS Safety Report 25088594 (Version 1)
Quarter: 2025Q1

REPORT INFORMATION
  Report Type: Report from Study
  Country: US (occurrence: US)
  Receive Date: 20250318
  Receipt Date: 20250318
  Transmission Date: 20250409
  Serious: No
  Sender: SUNOVION
  Company Number: US-SMPA-2025SPA002078AA

PATIENT

DRUGS (15)
  1. ORGOVYX [Suspect]
     Active Substance: RELUGOLIX
     Indication: Prostate cancer
     Dosage: 120 MG, QD
     Route: 048
     Dates: start: 202412
  2. AMLODIPINE [Concomitant]
     Active Substance: AMLODIPINE BESYLATE
  3. ATENOLOL [Concomitant]
     Active Substance: ATENOLOL
  4. DICYCLOMINE [Concomitant]
     Active Substance: DICYCLOMINE HYDROCHLORIDE
  5. LASIX [Concomitant]
     Active Substance: FUROSEMIDE
  6. GABAPENTIN [Concomitant]
     Active Substance: GABAPENTIN
  7. HYDROCHLOROTHIAZIDE [Concomitant]
     Active Substance: HYDROCHLOROTHIAZIDE
  8. LEVEMIR [Concomitant]
     Active Substance: INSULIN DETEMIR
  9. LOSARTAN [Concomitant]
     Active Substance: LOSARTAN
  10. POTASSIUM CHLORIDE [Concomitant]
     Active Substance: POTASSIUM CHLORIDE
  11. TAMSULOSIN [Concomitant]
     Active Substance: TAMSULOSIN
  12. ROSUVASTATIN [Concomitant]
     Active Substance: ROSUVASTATIN
  13. TIZANIDINE [Concomitant]
     Active Substance: TIZANIDINE
  14. TRULICITY [Concomitant]
     Active Substance: DULAGLUTIDE
  15. NORCO [Concomitant]
     Active Substance: ACETAMINOPHEN\HYDROCODONE BITARTRATE

REACTIONS (3)
  - Blood glucose increased [Unknown]
  - Incorrect dose administered [Unknown]
  - Product dose omission issue [Unknown]
